FAERS Safety Report 5282086-8 (Version None)
Quarter: 2007Q1

REPORT INFORMATION
  Report Type: 
  Country: None (occurrence: None)
  Receive Date: 20070330
  Receipt Date: 20070319
  Transmission Date: 20070707
  Serious: Yes (Hospitalization)
  Sender: FDA-Public Use
  Company Number: US-PFIZER INC-001-0902-M0000088

PATIENT
  Sex: Female
  Weight: 81.6 kg

DRUGS (4)
  1. NARDIL [Suspect]
     Indication: ANXIETY
     Dosage: DAILY DOSE:15MG
     Route: 048
  2. NARDIL [Suspect]
     Indication: AGORAPHOBIA
  3. NARDIL [Suspect]
     Indication: DEPRESSION
  4. XANAX [Concomitant]

REACTIONS (11)
  - ASTHENIA [None]
  - BEDRIDDEN [None]
  - BLOOD PRESSURE INCREASED [None]
  - DEPRESSION [None]
  - DIZZINESS [None]
  - DRUG INEFFECTIVE [None]
  - FATIGUE [None]
  - MANIA [None]
  - SLEEP DISORDER [None]
  - SOMNOLENCE [None]
  - UNEVALUABLE EVENT [None]
